FAERS Safety Report 10973267 (Version 3)
Quarter: 2019Q3

REPORT INFORMATION
  Report Type: Report from Study
  Country: NL (occurrence: NL)
  Receive Date: 20150401
  Receipt Date: 20190718
  Transmission Date: 20191004
  Serious: Yes (Hospitalization)
  Sender: FDA-Public Use
  Company Number: NL-TAKEDA-2014JNJ006537

PATIENT
  Age: 86 Year
  Sex: Female

DRUGS (5)
  1. BORTEZOMIB. [Suspect]
     Active Substance: BORTEZOMIB
     Indication: PLASMA CELL MYELOMA
     Dosage: 2.5 MILLIGRAM
     Route: 065
     Dates: start: 20141124, end: 20141208
  2. BORTEZOMIB. [Suspect]
     Active Substance: BORTEZOMIB
     Dosage: 3.5 MILLIGRAM
     Route: 065
     Dates: start: 20141124, end: 20150105
  3. PREDNISONE. [Suspect]
     Active Substance: PREDNISONE
     Indication: PLASMA CELL MYELOMA
     Dosage: 60 MILLIGRAM
     Route: 065
     Dates: start: 20141124
  4. BUMETANIDE. [Concomitant]
     Active Substance: BUMETANIDE
     Dosage: 2 MILLIGRAM, QD
     Dates: start: 20141212
  5. MELPHALAN. [Suspect]
     Active Substance: MELPHALAN
     Indication: PLASMA CELL MYELOMA
     Dosage: 12 MILLIGRAM
     Route: 048
     Dates: start: 20141124, end: 20141124

REACTIONS (2)
  - Right ventricular dysfunction [Recovered/Resolved]
  - Malaise [Not Recovered/Not Resolved]

NARRATIVE: CASE EVENT DATE: 20141209
